FAERS Safety Report 23875815 (Version 1)
Quarter: 2024Q2

REPORT INFORMATION
  Report Type: Spontaneous
  Country: US (occurrence: US)
  Receive Date: 20240520
  Receipt Date: 20240520
  Transmission Date: 20240716
  Serious: No
  Sender: FDA-Public Use
  Company Number: US-SA-SAC20240513000634

PATIENT
  Age: 43 Year
  Sex: Male

DRUGS (1)
  1. DUPIXENT [Suspect]
     Active Substance: DUPILUMAB
     Indication: Dermatitis allergic
     Dosage: DOSE: 300MG EVERY 2 WEEKS
     Route: 058

REACTIONS (6)
  - Dry skin [Unknown]
  - Erythema [Unknown]
  - Periorbital pain [Unknown]
  - Condition aggravated [Unknown]
  - Condition aggravated [Unknown]
  - Condition aggravated [Unknown]
